FAERS Safety Report 6591061-2 (Version None)
Quarter: 2010Q1

REPORT INFORMATION
  Report Type: 
  Country: None (occurrence: None)
  Receive Date: 20100219
  Receipt Date: 20100209
  Transmission Date: 20100710
  Serious: Yes (Life-Threatening)
  Sender: FDA-Public Use
  Company Number: US-BAYER-201013694NA

PATIENT
  Age: 41 Year
  Sex: Female
  Weight: 179 kg

DRUGS (4)
  1. MAGNEVIST [Suspect]
     Indication: SPINAL CORD DISORDER
     Dosage: TOTAL DAILY DOSE: 20 ML  UNIT DOSE: 20 ML
     Route: 042
     Dates: start: 20100209, end: 20100209
  2. VALIUM [Concomitant]
     Indication: PREMEDICATION
     Dosage: AS USED: 10 MG
     Dates: start: 20100209, end: 20100209
  3. DILANTIN [Concomitant]
  4. BLOOD PRESSURE MEDICATION NOS [Concomitant]

REACTIONS (1)
  - CONVULSION [None]
